FAERS Safety Report 10506440 (Version 1)
Quarter: 2014Q4

REPORT INFORMATION
  Report Type: Spontaneous
  Country: US (occurrence: US)
  Receive Date: 20141009
  Receipt Date: 20141009
  Transmission Date: 20150528
  Serious: No
  Sender: FDA-Public Use
  Company Number: US-BIOGENIDEC-2014BI101257

PATIENT
  Age: 44 Year

DRUGS (2)
  1. MORPHINE [Concomitant]
     Active Substance: MORPHINE
  2. TECFIDERA [Suspect]
     Active Substance: DIMETHYL FUMARATE
     Indication: PRODUCT USED FOR UNKNOWN INDICATION

REACTIONS (3)
  - Accidental exposure to product [Unknown]
  - Somnolence [Unknown]
  - Lethargy [Unknown]
